FAERS Safety Report 21675195 (Version 1)
Quarter: 2022Q4

REPORT INFORMATION
  Report Type: Report from Study
  Country: US (occurrence: US)
  Receive Date: 20221202
  Receipt Date: 20221202
  Transmission Date: 20230113
  Serious: Yes (Other)
  Sender: FDA-Public Use
  Company Number: US-002147023-NVSC2022US277071

PATIENT
  Age: 54 Year
  Sex: Male
  Weight: 120.2 kg

DRUGS (1)
  1. ENTRESTO [Suspect]
     Active Substance: SACUBITRIL\VALSARTAN
     Indication: Cardiac failure chronic
     Dosage: 1 DOSAGE FORM (51/49 MG), BID
     Route: 048
     Dates: start: 20160305

REACTIONS (2)
  - Pneumonia [Recovering/Resolving]
  - Cardiac infection [Recovering/Resolving]

NARRATIVE: CASE EVENT DATE: 20221126
